FAERS Safety Report 17104718 (Version 1)
Quarter: 2019Q4

REPORT INFORMATION
  Report Type: Spontaneous
  Country: US (occurrence: US)
  Receive Date: 20191107
  Receipt Date: 20191107
  Transmission Date: 20200122
  Serious: Yes (Hospitalization)
  Sender: FDA-Public Use
  Company Number: None

PATIENT
  Age: 54 Year
  Sex: Female
  Weight: 116 kg

DRUGS (1)
  1. EXENATIDE ER [Suspect]
     Active Substance: EXENATIDE
     Indication: GLUCOSE TOLERANCE IMPAIRED
     Route: 058
     Dates: start: 20190730

REACTIONS (4)
  - Diarrhoea [None]
  - Pyrexia [None]
  - Vomiting [None]
  - Asthenia [None]

NARRATIVE: CASE EVENT DATE: 20191104
